FAERS Safety Report 9351846 (Version 1)
Quarter: 2013Q2

REPORT INFORMATION
  Report Type: Spontaneous
  Country: GB (occurrence: None)
  Receive Date: 20130612
  Receipt Date: 20130612
  Transmission Date: 20140414
  Serious: Yes (Hospitalization)
  Sender: FDA-Public Use
  Company Number: FK201301980

PATIENT
  Age: 71 Year
  Sex: Male
  Weight: 85 kg

DRUGS (11)
  1. IRINOTECAN [Suspect]
     Indication: PANCREATIC CARCINOMA
     Dosage: 370 MG, 1 IN 2 WK
     Route: 042
     Dates: start: 20121003, end: 20121205
  2. OXALIPLATIN [Suspect]
     Indication: PANCREATIC CARCINOMA
     Dosage: 180 MG, 1 IN 14 D
     Route: 042
     Dates: start: 20121003, end: 20121205
  3. FLUOROURACIL [Suspect]
     Indication: PANCREATIC CARCINOMA
     Route: 042
     Dates: start: 20121003, end: 20121207
  4. DEXAMETHASONE (DEXAMETHASONE) [Suspect]
     Indication: PROPHYLAXIS OF NAUSEA AND VOMITING
     Route: 048
     Dates: start: 20121003, end: 20121208
  5. DOMPERIDONE (DOMPERIDONE) [Concomitant]
  6. FOLINIC ACID (FOLINIC ACID) [Concomitant]
  7. GRANISETRON (GRANISETRON) [Concomitant]
  8. THYROXINE (LEVOTHYROXINE SODIUM) [Concomitant]
  9. AMLODIPINE (AMLODIPINE) [Concomitant]
  10. CIPROFLOXACIN (CIFROFLOXACIN) [Concomitant]
  11. CREON (PANCREATIN) [Concomitant]

REACTIONS (3)
  - Depressed mood [None]
  - Hypomania [None]
  - Malaise [None]
